FAERS Safety Report 4923348-0 (Version None)
Quarter: 2006Q1

REPORT INFORMATION
  Report Type: 
  Country: None (occurrence: None)
  Receive Date: 20060227
  Receipt Date: 20060201
  Transmission Date: 20060701
  Serious: Yes (Hospitalization)
  Sender: FDA-Public Use
  Company Number: 2006UW01736

PATIENT
  Age: 20532 Day
  Sex: Female

DRUGS (1)
  1. CRESTOR [Suspect]
     Indication: HYPERLIPIDAEMIA
     Route: 048
     Dates: start: 20060111, end: 20060120

REACTIONS (3)
  - GLOBAL AMNESIA [None]
  - NAUSEA [None]
  - VOMITING [None]
